FAERS Safety Report 8548748-1 (Version None)
Quarter: 2012Q3

REPORT INFORMATION
  Report Type: 
  Country: None (occurrence: None)
  Receive Date: 20120730
  Receipt Date: 20120725
  Transmission Date: 20120928
  Serious: Yes (Other)
  Sender: FDA-Public Use
  Company Number: DE-BAYER-2012-050104

PATIENT
  Age: 82 Year
  Sex: Female

DRUGS (1)
  1. ULTRAVIST 150 [Suspect]
     Indication: CORONARY ARTERY DISEASE

REACTIONS (5)
  - EXPRESSIVE LANGUAGE DISORDER [None]
  - NERVOUS SYSTEM DISORDER [None]
  - DISTURBANCE IN ATTENTION [None]
  - SPEECH DISORDER [None]
  - MONOPARESIS [None]
